FAERS Safety Report 17583794 (Version 1)
Quarter: 2020Q1

REPORT INFORMATION
  Report Type: Spontaneous
  Country: OM (occurrence: OM)
  Receive Date: 20200326
  Receipt Date: 20200326
  Transmission Date: 20200409
  Serious: Yes (Other)
  Sender: FDA-Public Use
  Company Number: OM-BEH-2020115096

PATIENT
  Age: 67 Year
  Sex: Male

DRUGS (1)
  1. HUMAN ALBUMIN 20% SOLUTION [Suspect]
     Active Substance: ALBUMIN HUMAN
     Route: 065

REACTIONS (1)
  - Thrombocytopenia [Unknown]
